FAERS Safety Report 14438920 (Version 1)
Quarter: 2018Q1

REPORT INFORMATION
  Report Type: Spontaneous
  Country: US (occurrence: US)
  Receive Date: 20180125
  Receipt Date: 20180125
  Transmission Date: 20180509
  Serious: No
  Sender: FDA-Public Use
  Company Number: US-UNITED THERAPEUTICS-UNT-2017-013941

PATIENT
  Sex: Female
  Weight: 58.5 kg

DRUGS (2)
  1. REMODULIN [Suspect]
     Active Substance: TREPROSTINIL
     Dosage: 0.019 ?G/KG, CONTINUING
     Route: 058
     Dates: start: 20170929
  2. REMODULIN [Suspect]
     Active Substance: TREPROSTINIL
     Indication: PULMONARY ARTERIAL HYPERTENSION
     Dosage: 0.0195 ?G/KG, CONTINUING
     Route: 058
     Dates: start: 20170816, end: 20170929

REACTIONS (5)
  - Dyspnoea [Unknown]
  - Oedema [Unknown]
  - Infusion site pain [Unknown]
  - Therapy non-responder [Unknown]
  - Oxygen consumption increased [Unknown]

NARRATIVE: CASE EVENT DATE: 2017
